FAERS Safety Report 9860323 (Version 1)
Quarter: 2014Q1

REPORT INFORMATION
  Report Type: Spontaneous
  Country: US (occurrence: US)
  Receive Date: 20140202
  Receipt Date: 20140202
  Transmission Date: 20141002
  Serious: Yes (Death)
  Sender: FDA-Public Use
  Company Number: CHPA2014US001468

PATIENT
  Age: 24 Year
  Sex: Female

DRUGS (6)
  1. DIPHENHYDRAMINE [Suspect]
     Route: 055
  2. ACETAMINOPHEN (PARACETAMOL) [Suspect]
     Route: 055
  3. OXYCODONE [Suspect]
     Route: 055
  4. MUSCLE RELAXANTS [Suspect]
     Route: 055
  5. DIAZEPAM [Suspect]
     Route: 055
  6. COCAINE [Suspect]
     Route: 065

REACTIONS (1)
  - Intentional drug misuse [Fatal]
